FAERS Safety Report 20137641 (Version 1)
Quarter: 2021Q4

REPORT INFORMATION
  Report Type: Spontaneous
  Country: None (occurrence: US)
  Receive Date: 20211201
  Receipt Date: 20211201
  Transmission Date: 20220303
  Serious: Yes (Life-Threatening)
  Sender: FDA-Public Use
  Company Number: US-Oxford Pharmaceuticals, LLC-2122569

PATIENT
  Age: 22 Year
  Sex: Female

DRUGS (1)
  1. BACLOFEN [Suspect]
     Active Substance: BACLOFEN
     Indication: Cerebral palsy

REACTIONS (7)
  - Muscle spasticity [Recovered/Resolved]
  - Tachycardia [Recovered/Resolved]
  - Tachypnoea [Recovered/Resolved]
  - Mental status changes [Recovered/Resolved]
  - Autonomic nervous system imbalance [Recovered/Resolved]
  - Postoperative wound infection [Unknown]
  - Device failure [Unknown]
